FAERS Safety Report 16673492 (Version 1)
Quarter: 2019Q3

REPORT INFORMATION
  Report Type: Spontaneous
  Country: DE (occurrence: DE)
  Receive Date: 20190806
  Receipt Date: 20190806
  Transmission Date: 20191004
  Serious: Yes (Hospitalization)
  Sender: FDA-Public Use
  Company Number: DE-SA-2019SA114723

PATIENT
  Age: 25 Year
  Sex: Male
  Weight: 67 kg

DRUGS (5)
  1. LEMTRADA [Suspect]
     Active Substance: ALEMTUZUMAB
     Indication: MULTIPLE SCLEROSIS RELAPSE
     Dosage: 12 MG
     Route: 042
     Dates: start: 20190320, end: 20190323
  2. NOVALGIN (METAMIZOLE SODIUM) [Concomitant]
     Active Substance: METAMIZOLE SODIUM
     Dosage: 1 G, PRN
     Route: 042
  3. ACICLOVIR [Concomitant]
     Active Substance: ACYCLOVIR
     Indication: MULTIPLE SCLEROSIS
     Dosage: 200 MG
     Route: 048
     Dates: start: 20190320, end: 20190417
  4. LEMTRADA [Suspect]
     Active Substance: ALEMTUZUMAB
     Dosage: UNK
     Route: 065
     Dates: start: 2014
  5. PARACETAMOL [Concomitant]
     Active Substance: ACETAMINOPHEN
     Dosage: 1 G, PRN
     Route: 042

REACTIONS (11)
  - Abdominal pain [Recovered/Resolved]
  - Arthralgia [Unknown]
  - White blood cell disorder [Recovered/Resolved]
  - Vomiting [Unknown]
  - Lymphadenopathy [Recovered/Resolved]
  - Rash [Unknown]
  - Hepatomegaly [Recovered/Resolved]
  - Pyrexia [Recovered/Resolved]
  - C-reactive protein increased [Recovered/Resolved]
  - Splenomegaly [Recovered/Resolved]
  - Hepatic enzyme increased [Recovered/Resolved]

NARRATIVE: CASE EVENT DATE: 20190326
